FAERS Safety Report 4637693-X (Version None)
Quarter: 2005Q2

REPORT INFORMATION
  Report Type: 
  Country: None (occurrence: None)
  Receive Date: 20050325
  Receipt Date: 20041124
  Transmission Date: 20051028
  Serious: No
  Sender: FDA-Public Use
  Company Number: USA041184628

PATIENT
  Age: 62 Year
  Sex: Female

DRUGS (1)
  1. FORTEO [Suspect]
     Indication: OSTEOPOROSIS
     Dates: start: 20040901

REACTIONS (4)
  - BONE PAIN [None]
  - MUSCLE SPASMS [None]
  - PAIN IN EXTREMITY [None]
  - PARAESTHESIA [None]
